FAERS Safety Report 5714524-8 (Version None)
Quarter: 2008Q2

REPORT INFORMATION
  Report Type: 
  Country: None (occurrence: None)
  Receive Date: 20080421
  Receipt Date: 20080221
  Transmission Date: 20081010
  Serious: Yes (Other)
  Sender: FDA-Public Use
  Company Number: 2007AL005305

PATIENT
  Age: 27 Year
  Sex: Male

DRUGS (13)
  1. IBUPROFEN [Suspect]
     Indication: PHOBIA
  2. CODEINE SUL TAB [Concomitant]
  3. IBUPROFEN AND PSEUDOEPHEDRINE HCL [Concomitant]
  4. PAROXETINE HCL [Concomitant]
  5. LOFEPRAMINE [Concomitant]
  6. FLUOXETINE [Concomitant]
  7. LITHIUM CARBONATE [Concomitant]
  8. METHYLENEDIOXYMETHAMPHETAMINE [Concomitant]
  9. COCAINE [Concomitant]
  10. ECSTASY [Concomitant]
  11. ALCOHOL [Concomitant]
  12. NUROFEN [Concomitant]
  13. PAROXETINE HCL [Concomitant]

REACTIONS (10)
  - AGGRESSION [None]
  - CONSTIPATION [None]
  - DEPRESSION [None]
  - DRUG WITHDRAWAL SYNDROME [None]
  - DRY MOUTH [None]
  - MULTIPLE DRUG OVERDOSE [None]
  - SEXUAL DYSFUNCTION [None]
  - SUICIDAL IDEATION [None]
  - SUICIDE ATTEMPT [None]
  - VISION BLURRED [None]
